FAERS Safety Report 11806355 (Version 1)
Quarter: 2015Q4

REPORT INFORMATION
  Report Type: Spontaneous
  Country: US (occurrence: US)
  Receive Date: 20151207
  Receipt Date: 20151207
  Transmission Date: 20160305
  Serious: Yes (Other)
  Sender: FDA-Public Use
  Company Number: US-UCBSA-2015039066

PATIENT
  Age: 38 Year
  Sex: Male

DRUGS (4)
  1. LEVETIRACETAM. [Suspect]
     Active Substance: LEVETIRACETAM
     Dosage: DOSE INCREASED TO 1000 MG, 3X/DAY (TID)
  2. TOPIRAMATE. [Suspect]
     Active Substance: TOPIRAMATE
     Indication: CONVULSION PROPHYLAXIS
     Dosage: UNKNOWN DOSE
  3. LEVETIRACETAM. [Suspect]
     Active Substance: LEVETIRACETAM
     Indication: CONVULSION PROPHYLAXIS
     Dosage: 750 MG, 2X/DAY (BID)
  4. OXCARBAZEPINE. [Concomitant]
     Active Substance: OXCARBAZEPINE
     Indication: CONVULSION PROPHYLAXIS
     Dosage: UNKNOWN DOSE

REACTIONS (2)
  - Autonomic nervous system imbalance [Recovered/Resolved]
  - Inappropriate schedule of drug administration [Unknown]
